APPROVED DRUG PRODUCT: DIVALPROEX SODIUM
Active Ingredient: DIVALPROEX SODIUM
Strength: EQ 125MG VALPROIC ACID
Dosage Form/Route: CAPSULE, DELAYED REL PELLETS;ORAL
Application: A090407 | Product #001
Applicant: RISING PHARMA HOLDING INC
Approved: Mar 28, 2011 | RLD: No | RS: No | Type: DISCN